FAERS Safety Report 8615694-4 (Version None)
Quarter: 2012Q3

REPORT INFORMATION
  Report Type: 
  Country: None (occurrence: None)
  Receive Date: 20120823
  Receipt Date: 20120814
  Transmission Date: 20120928
  Serious: Yes (Death, Hospitalization, Other)
  Sender: FDA-Public Use
  Company Number: BR-ELI_LILLY_AND_COMPANY-BR201201008468

PATIENT
  Age: 82 Year
  Sex: Male

DRUGS (1)
  1. FORTEO [Suspect]
     Indication: OSTEOPOROSIS
     Dosage: UNK, UNKNOWN
     Route: 065
     Dates: end: 20100101

REACTIONS (12)
  - PELVIC FRACTURE [None]
  - SKULL FRACTURE [None]
  - CHRONIC RESPIRATORY FAILURE [None]
  - RESPIRATORY TRACT INFECTION [None]
  - FRACTURE [None]
  - LOWER LIMB FRACTURE [None]
  - NEUROLOGICAL SYMPTOM [None]
  - CEREBRAL ISCHAEMIA [None]
  - FALL [None]
  - INTENTIONAL DRUG MISUSE [None]
  - SPINAL FRACTURE [None]
  - DRUG INEFFECTIVE [None]
